FAERS Safety Report 8238769-0 (Version None)
Quarter: 2012Q1

REPORT INFORMATION
  Report Type: 
  Country: None (occurrence: None)
  Receive Date: 20120327
  Receipt Date: 20120319
  Transmission Date: 20120608
  Serious: Yes (Other)
  Sender: FDA-Public Use
  Company Number: PT-JNJFOC-20120304523

PATIENT
  Age: 76 Year
  Sex: Male
  Weight: 60.5 kg

DRUGS (6)
  1. FOLIC ACID [Concomitant]
     Indication: RHEUMATOID ARTHRITIS
     Dates: start: 20070101
  2. ENBREL [Suspect]
     Indication: RHEUMATOID ARTHRITIS
     Route: 058
     Dates: start: 20110816, end: 20120110
  3. METHOTREXATE [Concomitant]
     Indication: RHEUMATOID ARTHRITIS
  4. REMICADE [Suspect]
     Indication: RHEUMATOID ARTHRITIS
     Route: 042
     Dates: start: 20100616, end: 20110303
  5. CANDESARTAN CILEXETIL [Concomitant]
  6. STRONTIUM RANELATE [Concomitant]
     Dates: start: 20070101

REACTIONS (2)
  - SOFT TISSUE INFECTION [None]
  - BLADDER NEOPLASM [None]
